FAERS Safety Report 9701892 (Version 2)
Quarter: 2013Q4

REPORT INFORMATION
  Report Type: Spontaneous
  Country: US (occurrence: US)
  Receive Date: 20131121
  Receipt Date: 20131121
  Transmission Date: 20140711
  Serious: Yes (Hospitalization)
  Sender: FDA-Public Use
  Company Number: US-DENDREON CORPORATION-2013PROUSA03269

PATIENT
  Age: 66 Year
  Sex: Male
  Weight: 127.89 kg

DRUGS (15)
  1. PROVENGE [Suspect]
     Indication: PROSTATE CANCER METASTATIC
     Dosage: 250 ML, SINGLE
     Route: 042
     Dates: start: 20131028, end: 20131028
  2. ASPIRIN [Concomitant]
     Dosage: 81 MG, QD
     Route: 048
  3. COREG [Concomitant]
     Dosage: 25 MG, BID
  4. DULERA [Concomitant]
     Dosage: 2 PUFFS DAILY
  5. COZAAR [Concomitant]
     Dosage: 50 MG, QD
  6. LUPRON [Concomitant]
     Indication: PROSTATE CANCER METASTATIC
     Dosage: 45 MG, UNK
     Route: 058
  7. LIPITOR [Concomitant]
     Dosage: 20 MG, HS
     Route: 048
  8. SPIRIVA [Concomitant]
     Dosage: 18 MCG, QD
  9. SYNTHROID [Concomitant]
     Dosage: 175 MCG, QD
     Route: 048
  10. ZOLOFT [Concomitant]
     Dosage: 100 MG, QD
     Route: 048
  11. ZYRTEC [Concomitant]
     Dosage: UNK, PRN
  12. CALTRATE + D [Concomitant]
     Dosage: UNK, BID
  13. IBUPROFEN [Concomitant]
     Dosage: 200 MG
  14. CASODEX [Concomitant]
     Indication: PROSTATE CANCER METASTATIC
  15. PRILOSEC [Concomitant]
     Dosage: 20 MG, QD

REACTIONS (3)
  - Device related infection [Recovered/Resolved]
  - Staphylococcal bacteraemia [Recovered/Resolved]
  - Renal failure acute [Recovered/Resolved]
